FAERS Safety Report 4445595-7 (Version None)
Quarter: 2004Q3

REPORT INFORMATION
  Report Type: 
  Country: None (occurrence: None)
  Receive Date: 20040902
  Receipt Date: 20040817
  Transmission Date: 20050211
  Serious: Yes (Hospitalization)
  Sender: FDA-Public Use
  Company Number: A02200401333

PATIENT
  Age: 56 Year
  Sex: Male

DRUGS (7)
  1. PLAQUENIL [Suspect]
     Indication: DERMATOMYOSITIS
     Dosage: 400 MG OD
     Route: 048
     Dates: start: 20030101
  2. METHOTREXATE [Suspect]
     Indication: DERMATOMYOSITIS
     Dosage: 30 MG 1/WEEK
     Route: 030
     Dates: start: 20030901
  3. HYZAAR [Suspect]
  4. PREDNISONE [Suspect]
     Indication: DERMATOMYOSITIS
     Dosage: 30 MG QD
     Route: 048
     Dates: start: 20030401
  5. FOLIC ACID [Concomitant]
  6. DOLIPRANE (PARACETAMOL) [Concomitant]
  7. ATARAX [Concomitant]

REACTIONS (4)
  - DERMATOMYOSITIS [None]
  - PALPITATIONS [None]
  - RESPIRATORY FAILURE [None]
  - WEIGHT INCREASED [None]
